FAERS Safety Report 9099258 (Version 1)
Quarter: 2013Q1

REPORT INFORMATION
  Report Type: Spontaneous
  Country: US (occurrence: US)
  Receive Date: 20130214
  Receipt Date: 20130214
  Transmission Date: 20140127
  Serious: No
  Sender: FDA-Public Use
  Company Number: US-COVIDIEN/TYCO HEALTHCARE/MALLINCKRODT-T201300385

PATIENT
  Age: 46 None
  Sex: Female

DRUGS (12)
  1. FENTANYL TRANSDERMAL SYSTEM [Suspect]
     Indication: PAIN
     Dosage: 100 MCG/HR Q 72 HRS
     Route: 062
     Dates: start: 2012
  2. FENTANYL TRANSDERMAL SYSTEM [Suspect]
     Dosage: 50 MCG/HR Q 72 HOURS
     Route: 062
     Dates: start: 20130108
  3. DILAUDID [Concomitant]
     Indication: PAIN
     Dosage: 8 MG, 5/DAY
  4. FLUTICASONE [Concomitant]
     Dosage: 50 ?/SPRAY
  5. VALIUM                             /00017001/ [Concomitant]
     Dosage: 25 MG, TID
  6. BACLOFEN [Concomitant]
     Dosage: 10 MG, QD
  7. ERYTHROMYCIN [Concomitant]
     Indication: ACNE
     Dosage: 2% SOLUTION
     Route: 061
  8. LANSOPRAZOLE [Concomitant]
     Indication: ULCER
     Dosage: 30 MG, QD
  9. PAXIL [Concomitant]
     Indication: PANIC ATTACK
     Dosage: 20 MG, QD
  10. PAXIL [Concomitant]
     Indication: ANXIETY
  11. PAXIL [Concomitant]
     Indication: DEPRESSION
  12. ADDERALL [Concomitant]
     Indication: ATTENTION DEFICIT/HYPERACTIVITY DISORDER
     Dosage: 20 MG, BID

REACTIONS (3)
  - Pain [Not Recovered/Not Resolved]
  - Mobility decreased [Unknown]
  - Musculoskeletal stiffness [Unknown]
